FAERS Safety Report 9032784 (Version 2)
Quarter: 2013Q1

REPORT INFORMATION
  Report Type: Spontaneous
  Country: US (occurrence: None)
  Receive Date: 20130110
  Receipt Date: 20130128
  Transmission Date: 20140127
  Serious: Yes (Other)
  Sender: FDA-Public Use
  Company Number: 20120786

PATIENT
  Age: 65 Year
  Sex: Male

DRUGS (3)
  1. VENOFER [Suspect]
     Indication: BLOOD IRON DECREASED
     Route: 042
     Dates: start: 201209, end: 201211
  2. VENOFER [Suspect]
     Indication: RENAL FAILURE CHRONIC
     Route: 042
     Dates: start: 201209, end: 201211
  3. UNSPECIFIED MEDICATIONS [Concomitant]

REACTIONS (7)
  - Infusion site extravasation [None]
  - Unevaluable event [None]
  - Injection site discolouration [None]
  - Cellulitis [None]
  - Local swelling [None]
  - Diarrhoea [None]
  - Incorrect drug administration duration [None]
